FAERS Safety Report 21626195 (Version 1)
Quarter: 2022Q4

REPORT INFORMATION
  Report Type: Spontaneous
  Country: US (occurrence: None)
  Receive Date: 20221122
  Receipt Date: 20221122
  Transmission Date: 20230112
  Serious: No
  Sender: FDA-Public Use
  Company Number: US-ROCHE-3008062

PATIENT

DRUGS (3)
  1. PULMOZYME [Suspect]
     Active Substance: DORNASE ALFA
     Indication: Empyema
     Route: 034
     Dates: start: 20220120
  2. ACTIVASE [Suspect]
     Active Substance: ALTEPLASE
     Indication: Empyema
     Route: 034
     Dates: start: 20220120
  3. ACTIVASE [Suspect]
     Active Substance: ALTEPLASE

REACTIONS (3)
  - Off label use [Unknown]
  - Off label use [Unknown]
  - No adverse event [Unknown]

NARRATIVE: CASE EVENT DATE: 20220120
